FAERS Safety Report 5352443-X (Version None)
Quarter: 2007Q2

REPORT INFORMATION
  Report Type: 
  Country: None (occurrence: None)
  Receive Date: 20070611
  Receipt Date: 20070606
  Transmission Date: 20071010
  Serious: Yes (Other)
  Sender: FDA-Public Use
  Company Number: A0654422A

PATIENT
  Age: 40 Year
  Sex: Male

DRUGS (10)
  1. ZIAGEN [Suspect]
     Indication: HIV INFECTION
     Dosage: 300MG TWICE PER DAY
     Route: 048
     Dates: start: 20051001
  2. TRUVADA [Concomitant]
  3. FUZEON [Concomitant]
  4. OXYCONTIN [Concomitant]
  5. LORTAB [Concomitant]
  6. UNSPECIFIED MEDICATION [Concomitant]
  7. AMBIEN [Concomitant]
  8. TESTOSTERONE [Concomitant]
  9. SEROSTIM [Concomitant]
  10. DOXYCYCLINE [Concomitant]

REACTIONS (7)
  - ABDOMINAL PAIN [None]
  - ABDOMINAL PAIN UPPER [None]
  - ASTHENIA [None]
  - DYSGEUSIA [None]
  - MALAISE [None]
  - MICTURITION DISORDER [None]
  - NEPHROLITHIASIS [None]
